FAERS Safety Report 18651759 (Version 2)
Quarter: 2021Q1

REPORT INFORMATION
  Report Type: Spontaneous
  Country: SA (occurrence: SA)
  Receive Date: 20201223
  Receipt Date: 20210201
  Transmission Date: 20210419
  Serious: Yes (Other)
  Sender: FDA-Public Use
  Company Number: SA-AMGEN-SAUSP2020207275

PATIENT
  Age: 44 Year
  Sex: Male
  Weight: 76 kg

DRUGS (3)
  1. DERMOVIT [SELENIUM;UBIDECARENONE;VITAMINS NOS;YEAST] [Concomitant]
     Indication: PSORIASIS
     Dosage: UNK
     Dates: start: 202010
  2. FUCIDINE [DIETHANOLAMINE FUSIDATE] [Concomitant]
     Indication: PSORIASIS
     Dosage: UNK
     Dates: start: 202010
  3. OTEZLA [Suspect]
     Active Substance: APREMILAST
     Indication: PSORIASIS
     Dosage: 30 MILLIGRAM, BID
     Route: 048
     Dates: start: 20201110

REACTIONS (1)
  - Haematochezia [Unknown]

NARRATIVE: CASE EVENT DATE: 20201118
